FAERS Safety Report 4423910-8 (Version None)
Quarter: 2004Q3

REPORT INFORMATION
  Report Type: 
  Country: None (occurrence: None)
  Receive Date: 20040806
  Receipt Date: 20040720
  Transmission Date: 20050211
  Serious: Yes (Death)
  Sender: FDA-Public Use
  Company Number: EWC040639724

PATIENT
  Age: 47 Year
  Sex: Male
  Weight: 96 kg

DRUGS (5)
  1. ZYPREXA [Suspect]
     Indication: AGITATION
     Dosage: 10 MG/2 DAY
  2. MIDAZOLAM [Concomitant]
  3. HALOPERIDOL [Concomitant]
  4. BIPERIDEN HYDROCHLORIDE TAB [Concomitant]
  5. CLONAZEPAM [Concomitant]

REACTIONS (4)
  - APNOEA [None]
  - BLOOD PRESSURE IMMEASURABLE [None]
  - PULMONARY EMBOLISM [None]
  - PULSE ABSENT [None]
